FAERS Safety Report 23015429 (Version 1)
Quarter: 2023Q4

REPORT INFORMATION
  Report Type: Spontaneous
  Country: BR (occurrence: BR)
  Receive Date: 20231002
  Receipt Date: 20231002
  Transmission Date: 20240110
  Serious: Yes (Other)
  Sender: FDA-Public Use
  Company Number: BR-BAYER-2023A133662

PATIENT
  Age: 24 Year
  Sex: Female

DRUGS (1)
  1. DIENOGEST\ESTRADIOL VALERATE [Suspect]
     Active Substance: DIENOGEST\ESTRADIOL VALERATE
     Dosage: UNK, QD
     Route: 048

REACTIONS (4)
  - Joint swelling [Not Recovered/Not Resolved]
  - Subclavian vein thrombosis [None]
  - Deep vein thrombosis [None]
  - Superficial vein thrombosis [None]

NARRATIVE: CASE EVENT DATE: 20230905
